FAERS Safety Report 8983993 (Version 1)
Quarter: 2012Q4

REPORT INFORMATION
  Report Type: Spontaneous
  Country: US (occurrence: None)
  Receive Date: 20121218
  Receipt Date: 20121218
  Transmission Date: 20130627
  Serious: No
  Sender: FDA-Public Use
  Company Number: None

PATIENT
  Age: 91 Year
  Sex: Female
  Weight: 65.32 kg

DRUGS (1)
  1. UNSPECIFIED INGREDIENTS [Suspect]

REACTIONS (9)
  - Cardiac failure congestive [None]
  - Lethargy [None]
  - Malaise [None]
  - Generalised oedema [None]
  - Transaminases increased [None]
  - Thrombocytopenia [None]
  - Anaemia [None]
  - Haemolysis [None]
  - Haemolytic anaemia [None]
